FAERS Safety Report 20689171 (Version 1)
Quarter: 2022Q2

REPORT INFORMATION
  Report Type: Report from Study
  Country: US (occurrence: US)
  Receive Date: 20220408
  Receipt Date: 20220408
  Transmission Date: 20220720
  Serious: Yes (Hospitalization)
  Sender: FDA-Public Use
  Company Number: US-NOVARTISPH-NVSC2022US075818

PATIENT
  Sex: Female

DRUGS (1)
  1. ENTRESTO [Suspect]
     Active Substance: SACUBITRIL\VALSARTAN
     Indication: Product used for unknown indication
     Dosage: 1 DOSAGE FORM, BID
     Route: 048
     Dates: start: 202112

REACTIONS (6)
  - Insomnia [Unknown]
  - Disorientation [Unknown]
  - Dehydration [Unknown]
  - Blood magnesium abnormal [Unknown]
  - Blood glucose abnormal [Unknown]
  - Hepatic enzyme abnormal [Unknown]
